FAERS Safety Report 16353639 (Version 1)
Quarter: 2019Q2

REPORT INFORMATION
  Report Type: Spontaneous
  Country: US (occurrence: US)
  Receive Date: 20190524
  Receipt Date: 20190524
  Transmission Date: 20190711
  Serious: Yes (Other)
  Sender: FDA-Public Use
  Company Number: US-PFIZER INC-2019217158

PATIENT
  Age: 76 Year
  Sex: Female

DRUGS (1)
  1. CABERGOLINE. [Suspect]
     Active Substance: CABERGOLINE
     Dosage: UNK

REACTIONS (6)
  - Deafness [Unknown]
  - Anxiety [Unknown]
  - Nightmare [Unknown]
  - Drug hypersensitivity [Unknown]
  - Amnesia [Unknown]
  - Confusional state [Unknown]
